FAERS Safety Report 8202751-X (Version None)
Quarter: 2012Q1

REPORT INFORMATION
  Report Type: 
  Country: None (occurrence: None)
  Receive Date: 20120312
  Receipt Date: 20120312
  Transmission Date: 20120608
  Serious: Yes (Other)
  Sender: FDA-Public Use
  Company Number: None

PATIENT
  Age: 49 Year
  Sex: Female
  Weight: 64.863 kg

DRUGS (2)
  1. IMMUNE GLOBULIN NOS [Suspect]
     Indication: IMMUNODEFICIENCY COMMON VARIABLE
     Dosage: 500
     Dates: start: 20111221, end: 20111221
  2. IMMUNE GLOBULIN NOS [Concomitant]
     Dosage: 500
     Dates: start: 20111221, end: 20111221

REACTIONS (1)
  - PRODUCT COUNTERFEIT [None]
